FAERS Safety Report 5976238-9 (Version None)
Quarter: 2008Q4

REPORT INFORMATION
  Report Type: 
  Country: None (occurrence: None)
  Receive Date: 20081202
  Receipt Date: 20081120
  Transmission Date: 20090506
  Serious: Yes (Hospitalization)
  Sender: FDA-Public Use
  Company Number: FR-ROCHE-598626

PATIENT
  Age: 43 Year
  Sex: Female

DRUGS (2)
  1. XELODA [Suspect]
     Indication: BREAST CANCER
     Dosage: FREQUENCY REPORTED AS:BI
     Route: 065
     Dates: start: 20080315
  2. TYVERB [Suspect]
     Indication: BREAST CANCER
     Dosage: FREQUENCY REPORTED AS Q
     Route: 048
     Dates: start: 20080315

REACTIONS (2)
  - THYROID DISORDER [None]
  - THYROIDITIS [None]
